FAERS Safety Report 24270022 (Version 1)
Quarter: 2024Q3

REPORT INFORMATION
  Report Type: Spontaneous
  Country: FR (occurrence: FR)
  Receive Date: 20240830
  Receipt Date: 20240830
  Transmission Date: 20241017
  Serious: Yes (Life-Threatening, Other)
  Sender: MYLAN
  Company Number: None

PATIENT
  Age: 65 Year
  Sex: Male
  Weight: 66 kg

DRUGS (6)
  1. SUFENTANIL [Suspect]
     Active Substance: SUFENTANIL
     Indication: Surgery
     Dosage: UNK
     Route: 042
     Dates: start: 20240527, end: 20240527
  2. CEFAZOLIN SODIUM [Suspect]
     Active Substance: CEFAZOLIN SODIUM
     Indication: Surgery
     Dosage: 2 GRAM
     Route: 042
     Dates: start: 20240527, end: 20240527
  3. DEXAMETHASONE [Suspect]
     Active Substance: DEXAMETHASONE
     Indication: Surgery
     Dosage: 8 MILLIGRAM
     Route: 042
     Dates: start: 20240527, end: 20240527
  4. NIMBEX [Suspect]
     Active Substance: CISATRACURIUM BESYLATE
     Indication: Surgery
     Dosage: 20 MILLIGRAM
     Route: 042
     Dates: start: 20240527, end: 20240527
  5. KETAMINE [Suspect]
     Active Substance: KETAMINE
     Indication: Surgery
     Dosage: 30 MILLIGRAM
     Route: 042
     Dates: start: 20240527, end: 20240527
  6. KETOPROFEN [Suspect]
     Active Substance: KETOPROFEN
     Indication: Surgery
     Dosage: 100 MILLIGRAM
     Route: 042
     Dates: start: 20240527, end: 20240527

REACTIONS (1)
  - Anaphylactic shock [Recovered/Resolved]

NARRATIVE: CASE EVENT DATE: 20240527
